FAERS Safety Report 13001367 (Version 2)
Quarter: 2016Q4

REPORT INFORMATION
  Report Type: Report from Study
  Country: US (occurrence: US)
  Receive Date: 20161206
  Receipt Date: 20161228
  Transmission Date: 20170207
  Serious: Yes (Hospitalization)
  Sender: FDA-Public Use
  Company Number: PHHO2016US017595

PATIENT
  Age: 66 Year
  Sex: Female

DRUGS (3)
  1. FARYDAK [Suspect]
     Active Substance: PANOBINOSTAT
     Indication: MALIGNANT MELANOMA
     Dosage: 10 MG, TIW
     Route: 048
     Dates: start: 20161111
  2. IPILIMUMAB [Suspect]
     Active Substance: IPILIMUMAB
     Indication: MALIGNANT MELANOMA
     Dosage: UNK
     Route: 042
     Dates: end: 20061111
  3. FARYDAK [Suspect]
     Active Substance: PANOBINOSTAT
     Dosage: 5 MG, TIW (TUESDAY/FRIDAY/SUNDAY)
     Route: 048
     Dates: start: 20161129

REACTIONS (1)
  - Diarrhoea [Recovered/Resolved]

NARRATIVE: CASE EVENT DATE: 20161111
